FAERS Safety Report 16536968 (Version 2)
Quarter: 2019Q3

REPORT INFORMATION
  Report Type: Report from Study
  Country: CA (occurrence: CA)
  Receive Date: 20190707
  Receipt Date: 20190709
  Transmission Date: 20191004
  Serious: No
  Sender: FDA-Public Use
  Company Number: PHHY2018CA046174

PATIENT
  Sex: Female

DRUGS (2)
  1. REVOLADE [Suspect]
     Active Substance: ELTROMBOPAG
     Indication: IMMUNE THROMBOCYTOPENIC PURPURA
     Dosage: 25 MG, UNK
     Route: 048
     Dates: start: 20180525
  2. REVOLADE [Suspect]
     Active Substance: ELTROMBOPAG
     Dosage: 50 MG, UNK
     Route: 048

REACTIONS (11)
  - Stress [Unknown]
  - Product blister packaging issue [Unknown]
  - Thirst [Unknown]
  - Paraesthesia [Unknown]
  - Tenderness [Unknown]
  - Platelet count decreased [Unknown]
  - Haemoglobin increased [Unknown]
  - Pruritus [Unknown]
  - Haemoglobin decreased [Unknown]
  - Insomnia [Recovering/Resolving]
  - Fatigue [Unknown]
